FAERS Safety Report 10097981 (Version 1)
Quarter: 2014Q2

REPORT INFORMATION
  Report Type: Spontaneous
  Country: US (occurrence: US)
  Receive Date: 20140423
  Receipt Date: 20140423
  Transmission Date: 20141212
  Serious: Yes (Other)
  Sender: FDA-Public Use
  Company Number: US-TEVA-476814USA

PATIENT
  Sex: Female

DRUGS (1)
  1. FLUOCINONIDE [Suspect]

REACTIONS (3)
  - Haemoptysis [Unknown]
  - Tracheal disorder [Unknown]
  - Drug administered at inappropriate site [Unknown]
